FAERS Safety Report 18081948 (Version 3)
Quarter: 2020Q4

REPORT INFORMATION
  Report Type: Spontaneous
  Country: DE (occurrence: DE)
  Receive Date: 20200729
  Receipt Date: 20201007
  Transmission Date: 20210113
  Serious: Yes (Other)
  Sender: FDA-Public Use
  Company Number: DE-AUROBINDO-AUR-APL-2020-036580

PATIENT
  Age: 81 Year
  Sex: Male

DRUGS (28)
  1. DABRAFENIB [Suspect]
     Active Substance: DABRAFENIB
     Indication: PLASMA CELL MYELOMA
  2. METHOTREXATE. [Suspect]
     Active Substance: METHOTREXATE
     Indication: PLASMA CELL MYELOMA
     Dosage: UNK, TRIPLE THERAPY
     Route: 037
  3. BORTEZOMIB. [Suspect]
     Active Substance: BORTEZOMIB
     Indication: PLASMA CELL MYELOMA
     Dosage: UNK NINE CYCLES OF VMP CHEMOTHERAPY
     Route: 065
  4. DEXAMETHASONE. [Suspect]
     Active Substance: DEXAMETHASONE
     Indication: PLASMA CELL MYELOMA
  5. METHOTREXATE. [Suspect]
     Active Substance: METHOTREXATE
     Indication: CHEMOTHERAPY
  6. BORTEZOMIB. [Suspect]
     Active Substance: BORTEZOMIB
     Indication: CHEMOTHERAPY
  7. BORTEZOMIB. [Suspect]
     Active Substance: BORTEZOMIB
     Indication: PLASMA CELL MYELOMA
  8. TRAMETINIB [Suspect]
     Active Substance: TRAMETINIB
     Indication: PLASMA CELL MYELOMA
  9. MELPHALAN. [Suspect]
     Active Substance: MELPHALAN
     Indication: PLASMA CELL MYELOMA
     Dosage: UNK NINE CYCLES OF VMP CHEMOTHERAPY
     Route: 065
  10. THIOTEPA. [Suspect]
     Active Substance: THIOTEPA
     Indication: PLASMA CELL MYELOMA
  11. TRAMETINIB [Suspect]
     Active Substance: TRAMETINIB
     Indication: TARGETED CANCER THERAPY
  12. MELPHALAN. [Suspect]
     Active Substance: MELPHALAN
     Indication: CHEMOTHERAPY
  13. DEXAMETHASONE. [Suspect]
     Active Substance: DEXAMETHASONE
     Indication: CHEMOTHERAPY
  14. METHOTREXATE. [Suspect]
     Active Substance: METHOTREXATE
     Indication: PLASMA CELL MYELOMA
  15. PREDNISONE. [Suspect]
     Active Substance: PREDNISONE
     Indication: PLASMA CELL MYELOMA
     Dosage: UNK NINE CYCLES  OF VMP CHEMOTHERAPY
     Route: 065
  16. PREDNISONE. [Suspect]
     Active Substance: PREDNISONE
     Indication: CHEMOTHERAPY
  17. THIOTEPA. [Suspect]
     Active Substance: THIOTEPA
     Indication: PLASMA CELL MYELOMA
     Dosage: UNK, AGE-ADJUSTED SYSTEMIC CHEMOTHERAPY
     Route: 065
  18. MELPHALAN. [Suspect]
     Active Substance: MELPHALAN
     Indication: PLASMA CELL MYELOMA
  19. CYTARABINE. [Suspect]
     Active Substance: CYTARABINE
     Indication: PLASMA CELL MYELOMA
     Dosage: UNK, TRIPLE THERAPY AND AS AGE-ADJUSTED SYSTEMIC CHEMOTHERAPY
     Route: 037
  20. CYTARABINE. [Suspect]
     Active Substance: CYTARABINE
     Indication: CHEMOTHERAPY
  21. CYTARABINE. [Suspect]
     Active Substance: CYTARABINE
     Indication: PLASMA CELL MYELOMA
  22. DABRAFENIB [Suspect]
     Active Substance: DABRAFENIB
     Indication: PLASMA CELL MYELOMA
     Dosage: 50 MILLIGRAM, TWO TIMES A DAY, COMBINATIONAL TARGETED THERAPY
     Route: 065
  23. DABRAFENIB [Suspect]
     Active Substance: DABRAFENIB
     Indication: TARGETED CANCER THERAPY
  24. DEXAMETHASONE. [Suspect]
     Active Substance: DEXAMETHASONE
     Indication: PLASMA CELL MYELOMA
     Dosage: UNK, TRIPLE THERAPY
     Route: 037
  25. PREDNISONE. [Suspect]
     Active Substance: PREDNISONE
     Indication: PLASMA CELL MYELOMA
  26. THIOTEPA. [Suspect]
     Active Substance: THIOTEPA
     Indication: CHEMOTHERAPY
  27. TRAMETINIB [Suspect]
     Active Substance: TRAMETINIB
     Indication: PLASMA CELL MYELOMA
     Dosage: 2 MILLIGRAM, DAILY, COMBINATIONAL TARGETED THERAPY
     Route: 065
  28. TRAMETINIB [Suspect]
     Active Substance: TRAMETINIB
     Indication: CHEMOTHERAPY

REACTIONS (4)
  - Multiple-drug resistance [Unknown]
  - Drug ineffective [Unknown]
  - Neutropenia [Unknown]
  - Bacterial sepsis [Unknown]
